FAERS Safety Report 24828998 (Version 3)
Quarter: 2025Q2

REPORT INFORMATION
  Report Type: Report from Study
  Country: US (occurrence: US)
  Receive Date: 20250110
  Receipt Date: 20250403
  Transmission Date: 20250717
  Serious: No
  Sender: SUNOVION
  Company Number: US-SUMITOMO PHARMA SWITZERLAND GMBH-2024SPA006836

PATIENT

DRUGS (1)
  1. ORGOVYX [Suspect]
     Active Substance: RELUGOLIX
     Indication: Prostate cancer
     Dosage: 120 MG, QD
     Route: 048
     Dates: start: 20241218

REACTIONS (9)
  - Post-traumatic stress disorder [Unknown]
  - Adjustment disorder with depressed mood [Unknown]
  - Cold sweat [Unknown]
  - Palpitations [Unknown]
  - Anxiety [Unknown]
  - Dizziness [Unknown]
  - Insomnia [Unknown]
  - Hot flush [Unknown]
  - Incorrect dose administered [Unknown]
